FAERS Safety Report 6529052 (Version 14)
Quarter: 2012Q4

REPORT INFORMATION
  Report Type: 
  Country: US (occurrence: US)
  Receive Date: 20080117
  Receipt Date: 20121102
  Transmission Date: 20130627
  Serious: Yes (Hospitalization, Other)
  Sender: FDA-Public Use
  Company Number: US-JNJFOC-20070104789

PATIENT
  Age: 13 Year
  Sex: Male
  Weight: 70 kg

DRUGS (8)
  1. RISPERDAL [Suspect]
     Indication: OBSESSIVE-COMPULSIVE DISORDER
     Route: 065
     Dates: start: 20011102, end: 20020202
  2. RISPERDAL [Suspect]
     Indication: ANXIETY DISORDER
     Route: 065
     Dates: start: 20011102, end: 20020202
  3. RISPERDAL [Suspect]
     Indication: PRODUCT USED FOR UNKNOWN INDICATION
     Route: 048
  4. SEROQUEL [Suspect]
     Indication: OBSESSIVE-COMPULSIVE DISORDER
     Route: 065
     Dates: start: 20020302, end: 20030102
  5. SEROQUEL [Suspect]
     Indication: ANXIETY DISORDER
     Route: 065
     Dates: start: 20020302, end: 20030102
  6. OLANZAPINE [Suspect]
     Indication: PRODUCT USED FOR UNKNOWN INDICATION
  7. ZOLOFT [Concomitant]
  8. CLONIDINE [Concomitant]

REACTIONS (17)
  - Diabetic coma [Unknown]
  - Diabetic ketoacidosis [Unknown]
  - Type 1 diabetes mellitus [Unknown]
  - Mastectomy [Unknown]
  - Gynaecomastia [Unknown]
  - Akathisia [Unknown]
  - Hyperprolactinaemia [Unknown]
  - Anxiety [Unknown]
  - Suicidal ideation [Unknown]
  - Pancreatitis [Unknown]
  - Mauriac syndrome [Unknown]
  - Abnormal weight gain [Unknown]
  - Irritability [Unknown]
  - Agitation [Unknown]
  - Aggression [Unknown]
  - Impulsive behaviour [Unknown]
  - Hostility [Unknown]
